FAERS Safety Report 8043415-5 (Version None)
Quarter: 2012Q1

REPORT INFORMATION
  Report Type: 
  Country: None (occurrence: None)
  Receive Date: 20120112
  Receipt Date: 20120109
  Transmission Date: 20120608
  Serious: Yes (Death, Hospitalization)
  Sender: FDA-Public Use
  Company Number: PHHY2012ES001939

PATIENT
  Age: 67 Year
  Sex: Male
  Weight: 72 kg

DRUGS (2)
  1. OXALIPLATIN [Suspect]
     Indication: ADENOCARCINOMA
     Dosage: UNK
     Route: 042
     Dates: start: 20110323, end: 20110830
  2. FLUOROURACIL [Suspect]
     Indication: ADENOCARCINOMA
     Dosage: UNK
     Dates: start: 20110329, end: 20110830

REACTIONS (2)
  - ACUTE RESPIRATORY FAILURE [None]
  - PULMONARY FIBROSIS [None]
